FAERS Safety Report 7241725-2 (Version None)
Quarter: 2011Q1

REPORT INFORMATION
  Report Type: 
  Country: None (occurrence: None)
  Receive Date: 20110124
  Receipt Date: 20110120
  Transmission Date: 20110831
  Serious: Yes (Hospitalization, Other)
  Sender: FDA-Public Use
  Company Number: PHHO2007US02185

PATIENT
  Sex: Female
  Weight: 69.5 kg

DRUGS (5)
  1. STI571/CGP57148B [Suspect]
     Dosage: 800 MG, UNK
     Route: 048
     Dates: start: 20060518, end: 20060521
  2. STI571/CGP57148B [Suspect]
     Dosage: NO TREATMENT
     Dates: start: 20060522, end: 20060524
  3. STI571/CGP57148B [Suspect]
     Indication: CHRONIC MYELOID LEUKAEMIA
     Dosage: 800 MG, 5QD2SDO
     Route: 048
     Dates: start: 20060406, end: 20060504
  4. STI571/CGP57148B [Suspect]
     Dosage: NO TREATMENT
     Dates: start: 20060505, end: 20060517
  5. STI571/CGP57148B [Suspect]
     Dosage: 400 MG, QD
     Route: 048
     Dates: start: 20060831, end: 20070127

REACTIONS (7)
  - ABDOMINAL PAIN [None]
  - PREMATURE LABOUR [None]
  - PLACENTAL DISORDER [None]
  - PREMATURE RUPTURE OF MEMBRANES [None]
  - GESTATIONAL HYPERTENSION [None]
  - VAGINAL HAEMORRHAGE [None]
  - DRUG EXPOSURE DURING PREGNANCY [None]
